FAERS Safety Report 6594857-6 (Version None)
Quarter: 2010Q1

REPORT INFORMATION
  Report Type: 
  Country: None (occurrence: None)
  Receive Date: 20100222
  Receipt Date: 20100127
  Transmission Date: 20100710
  Serious: Yes (Other)
  Sender: FDA-Public Use
  Company Number: JP-PFIZER INC-2010020452

PATIENT
  Age: 19 Year
  Sex: Male
  Weight: 51 kg

DRUGS (4)
  1. PROVERA [Suspect]
     Indication: OFF LABEL USE
     Dosage: 2 TABLETS/DAY
  2. PROVERA [Suspect]
     Indication: APNOEIC ATTACK
     Dosage: 10 TABLETS/DAY
  3. PROSTAL [Suspect]
     Indication: OFF LABEL USE
  4. PROSTAL [Suspect]
     Indication: APNOEIC ATTACK

REACTIONS (5)
  - AZOOSPERMIA [None]
  - ERECTILE DYSFUNCTION [None]
  - GYNAECOMASTIA [None]
  - LIBIDO DECREASED [None]
  - TESTICULAR ATROPHY [None]
